FAERS Safety Report 6675218-8 (Version None)
Quarter: 2010Q2

REPORT INFORMATION
  Report Type: 
  Country: None (occurrence: None)
  Receive Date: 20100409
  Receipt Date: 20100330
  Transmission Date: 20101027
  Serious: Yes (Other)
  Sender: FDA-Public Use
  Company Number: US-PFIZER INC-2009312500

PATIENT
  Sex: Female
  Weight: 71.655 kg

DRUGS (6)
  1. RELPAX [Suspect]
     Indication: MIGRAINE
     Dosage: 40 MG, AS NEEDED
  2. ZOLOFT [Suspect]
     Indication: MIGRAINE
     Dosage: 50 MG, 1X/DAY
     Dates: start: 20091123
  3. MAXALT [Concomitant]
     Dosage: UNK
  4. PROPAFENONE [Concomitant]
     Indication: CARDIAC DISORDER
     Dosage: UNK
  5. ATENOLOL [Concomitant]
     Indication: CARDIAC DISORDER
     Dosage: UNK
  6. CYCLOBENZAPRINE [Concomitant]
     Indication: PAIN
     Dosage: UNK

REACTIONS (5)
  - DRUG INEFFECTIVE [None]
  - EXOSTOSIS [None]
  - GASTRIC OPERATION [None]
  - HEADACHE [None]
  - SPINAL OSTEOARTHRITIS [None]
